FAERS Safety Report 14651986 (Version 2)
Quarter: 2018Q2

REPORT INFORMATION
  Report Type: Spontaneous
  Country: US (occurrence: US)
  Receive Date: 20180317
  Receipt Date: 20180502
  Transmission Date: 20180711
  Serious: Yes (Death, Hospitalization)
  Sender: FDA-Public Use
  Company Number: US-JNJFOC-20180306435

PATIENT
  Age: 51 Year
  Sex: Male
  Weight: 86 kg

DRUGS (2)
  1. XARELTO [Suspect]
     Active Substance: RIVAROXABAN
     Indication: DEEP VEIN THROMBOSIS
     Dosage: 15 MG/DAY (TO BE LATER??SWITCHED OVER TO 20 MG AFTER??FIRST 21 DAYS)
     Route: 048
     Dates: start: 20160802, end: 20160815
  2. XARELTO [Suspect]
     Active Substance: RIVAROXABAN
     Indication: THROMBOSIS PROPHYLAXIS
     Dosage: 15 MG/DAY (TO BE LATER??SWITCHED OVER TO 20 MG AFTER??FIRST 21 DAYS)
     Route: 048
     Dates: start: 20160802, end: 20160815

REACTIONS (6)
  - Haematuria [Unknown]
  - Cholecystitis acute [Fatal]
  - Deep vein thrombosis [Fatal]
  - Adrenal haemorrhage [Unknown]
  - Retroperitoneal haemorrhage [Unknown]
  - Rectal haemorrhage [Unknown]

NARRATIVE: CASE EVENT DATE: 201608
